FAERS Safety Report 9696415 (Version 3)
Quarter: 2014Q1

REPORT INFORMATION
  Report Type: Spontaneous
  Country: US (occurrence: US)
  Receive Date: 20131119
  Receipt Date: 20140212
  Transmission Date: 20141002
  Serious: Yes (Hospitalization, Other)
  Sender: FDA-Public Use
  Company Number: US-PFIZER INC-2013328679

PATIENT
  Age: 75 Year
  Sex: Female

DRUGS (2)
  1. CADUET [Suspect]
     Dosage: 10 MG/ 10 MG, UNK
  2. ACCUPRIL [Concomitant]
     Dosage: UNK
     Dates: end: 201310

REACTIONS (6)
  - Gastrointestinal disorder [Unknown]
  - Lung neoplasm malignant [Recovered/Resolved]
  - Cancer in remission [Unknown]
  - Therapeutic response unexpected [Unknown]
  - Sleep disorder [Unknown]
  - Pain [Unknown]
